FAERS Safety Report 8171894-1 (Version None)
Quarter: 2012Q1

REPORT INFORMATION
  Report Type: 
  Country: None (occurrence: None)
  Receive Date: 20120228
  Receipt Date: 20120221
  Transmission Date: 20120608
  Serious: Yes (Hospitalization)
  Sender: FDA-Public Use
  Company Number: US-ROCHE-1043175

PATIENT
  Sex: Female

DRUGS (3)
  1. VALIUM [Suspect]
     Indication: BACK PAIN
  2. EPINEPHRINE [Suspect]
     Indication: BACK PAIN
  3. XYLOCAINE [Suspect]
     Indication: BACK PAIN
     Dosage: INTRA-SPINAL

REACTIONS (1)
  - ANAPHYLACTIC SHOCK [None]
